FAERS Safety Report 8756748 (Version 2)
Quarter: 2012Q4

REPORT INFORMATION
  Report Type: 
  Country: US (occurrence: US)
  Receive Date: 20120828
  Receipt Date: 20121218
  Transmission Date: 20130627
  Serious: Yes (Hospitalization)
  Sender: FDA-Public Use
  Company Number: US-BAYER-2012-087819

PATIENT
  Age: 32 Year
  Sex: Female
  Weight: 67.12 kg

DRUGS (15)
  1. YASMIN [Suspect]
     Indication: BIRTH CONTROL
     Dosage: UNK
     Dates: start: 200503, end: 200909
  2. YASMIN [Suspect]
     Indication: MENSTRUAL CYCLE MANAGEMENT
  3. YASMIN [Suspect]
     Indication: POLYCYSTIC OVARIAN SYNDROME
  4. YAZ [Suspect]
     Indication: BIRTH CONTROL
     Dosage: UNK
     Dates: start: 200503, end: 200909
  5. YAZ [Suspect]
     Indication: MENSTRUAL CYCLE MANAGEMENT
  6. YAZ [Suspect]
     Indication: POLYCYSTIC OVARIAN SYNDROME
  7. OCELLA [Suspect]
     Indication: BIRTH CONTROL
     Dosage: UNK
     Dates: start: 200503, end: 200909
  8. OCELLA [Suspect]
     Indication: MENSTRUAL CYCLE MANAGEMENT
  9. OCELLA [Suspect]
     Indication: POLYCYSTIC OVARIAN SYNDROME
  10. ALDACTONE [SPIRONOLACTONE] [Concomitant]
     Indication: POLYCYSTIC OVARIAN SYNDROME
     Dosage: UNK
     Dates: start: 1996
  11. ANTIBIOTICS [Concomitant]
  12. VITAMIN C [Concomitant]
     Indication: SICKNESS
  13. RITALIN [Concomitant]
     Indication: ADD
     Dosage: UNK
     Dates: start: 2001
  14. TRAMADOL [Concomitant]
     Indication: FIBROMYALGIA
     Dosage: UNK
     Dates: start: 2006, end: 2009
  15. GLUCOPHAGE [Concomitant]
     Indication: POLYCYSTIC OVARIAN SYNDROME
     Dosage: UNK
     Dates: start: 2004

REACTIONS (7)
  - Gallbladder disorder [None]
  - Emotional distress [None]
  - Injury [None]
  - Pain [None]
  - Anxiety [None]
  - Psychological trauma [None]
  - Off label use [None]
